FAERS Safety Report 21369937 (Version 1)
Quarter: 2022Q3

REPORT INFORMATION
  Report Type: Spontaneous
  Country: DE (occurrence: DE)
  Receive Date: 20220923
  Receipt Date: 20220923
  Transmission Date: 20221027
  Serious: Yes (Life-Threatening, Hospitalization, Other)
  Sender: FDA-Public Use
  Company Number: DE-ADRED-08301-01

PATIENT

DRUGS (12)
  1. LAMOTRIGINE [Suspect]
     Active Substance: LAMOTRIGINE
     Indication: Product used for unknown indication
     Dosage: 150 MG, BID (150MG, 1-0-0-1, TABLETS)
     Route: 048
  2. SULFAMETHOXAZOLE\TRIMETHOPRIM [Suspect]
     Active Substance: SULFAMETHOXAZOLE\TRIMETHOPRIM
     Indication: Product used for unknown indication
     Dosage: UNK (800/160 MG, ACCORDING TO THE SCHEME)
     Route: 048
  3. QUETIAPINE [Suspect]
     Active Substance: QUETIAPINE
     Indication: Product used for unknown indication
     Dosage: 200 MG, QD  (100 MG, 0-0-2-0, TABLETS)
     Route: 048
  4. DESMOPRESSIN [Suspect]
     Active Substance: DESMOPRESSIN
     Indication: Product used for unknown indication
     Dosage: 0.018 MG, QD ( (0.009 MG, 0-0-2-0, NASAL SPRAY)
     Route: 045
  5. DOXEPIN [Suspect]
     Active Substance: DOXEPIN
     Indication: Product used for unknown indication
     Dosage: 100 MG, BID (50 MG, 0-0-0-2, TABLETS)
     Route: 048
  6. QUETIAPINE [Suspect]
     Active Substance: QUETIAPINE
     Indication: Product used for unknown indication
     Dosage: 200 MG, QD (200 MG, 0-0-1-0, PROLONGED-RELEASE TABLETS)
     Route: 048
  7. ESCITALOPRAM [Suspect]
     Active Substance: ESCITALOPRAM OXALATE
     Indication: Product used for unknown indication
     Dosage: 20 MG, QD (20 MG, 1-0-0-0, TABLETS)
     Route: 048
  8. ATORVASTATIN [Concomitant]
     Active Substance: ATORVASTATIN
     Indication: Product used for unknown indication
     Dosage: 10 MG, QD (10 MG, 0-0-1-0, TABLETS)
     Route: 048
  9. PANTOPRAZOLE SODIUM [Concomitant]
     Active Substance: PANTOPRAZOLE SODIUM
     Indication: Product used for unknown indication
     Dosage: 40 MG, QD (40 MG, 0-0-1-0, PROLONGED-RELEASE TABLETS)
     Route: 048
  10. LEVETIRACETAM [Concomitant]
     Active Substance: LEVETIRACETAM
     Indication: Product used for unknown indication
     Dosage: 3000 MG, QD (1500 MG, 1-0-0-1, TABLETS)
     Route: 048
  11. PANCREATIN [Concomitant]
     Active Substance: PANCRELIPASE
     Indication: Product used for unknown indication
     Dosage: 40000 IU, QD (40000 IU, 0-0-1-0, CAPSULES)
     Route: 048
  12. BISOPROLOL [Concomitant]
     Active Substance: BISOPROLOL
     Indication: Product used for unknown indication
     Dosage: 5 MG, QD (5 MG, 0.5-0-0.5-0, TABLETS)
     Route: 048

REACTIONS (5)
  - Product prescribing error [Unknown]
  - Urinary retention [Unknown]
  - Urinary tract infection [Unknown]
  - Hyponatraemia [Unknown]
  - Pollakiuria [Unknown]
